FAERS Safety Report 7741131 (Version 11)
Quarter: 2012Q4

REPORT INFORMATION
  Report Type: 
  Country: CA (occurrence: CA)
  Receive Date: 20101228
  Receipt Date: 20121003
  Transmission Date: 20130627
  Serious: Yes (Hospitalization, Other)
  Sender: FDA-Public Use
  Company Number: PHHY2010CA86149

PATIENT
  Sex: Male

DRUGS (10)
  1. SANDOSTATIN [Suspect]
     Indication: NEUROENDOCRINE TUMOUR
     Dosage: 150 ug, BID
     Route: 058
     Dates: end: 20101214
  2. SANDOSTATIN LAR [Suspect]
     Indication: NEUROENDOCRINE TUMOUR
     Dosage: 20 mg, QMO
     Route: 030
     Dates: start: 20101215
  3. SANDOSTATIN LAR [Suspect]
     Dosage: 30 mg every 4 weeks
     Route: 030
  4. SANDOSTATIN LAR [Suspect]
     Dosage: 30 mg, once a month
     Route: 030
  5. INSULIN [Concomitant]
     Dosage: UNK UKN, UNK
  6. DILAUDID [Concomitant]
     Dosage: UNK UKN, UNK
  7. CELEXA [Concomitant]
     Dosage: UNK UKN, UNK
  8. LIPITOR [Concomitant]
     Dosage: UNK UKN, UNK
  9. PANTOLOC [Concomitant]
     Dosage: UNK UKN, UNK
  10. DIAMICRON [Concomitant]
     Dosage: UNK UKN, UNK

REACTIONS (5)
  - Postoperative wound infection [Unknown]
  - Abdominal infection [Recovering/Resolving]
  - Staphylococcal infection [Unknown]
  - Hernia [Recovered/Resolved]
  - Back pain [Recovering/Resolving]
